FAERS Safety Report 4541791-9 (Version None)
Quarter: 2004Q4

REPORT INFORMATION
  Report Type: 
  Country: None (occurrence: None)
  Receive Date: 20041230
  Receipt Date: 20041221
  Transmission Date: 20050328
  Serious: Yes (Hospitalization)
  Sender: FDA-Public Use
  Company Number: 200413730EU

PATIENT
  Age: 34 Year
  Sex: Female

DRUGS (7)
  1. FLAGYL [Suspect]
     Indication: ENTEROCOLITIS
     Route: 048
     Dates: start: 20041001, end: 20041101
  2. SANDIMMUNE [Suspect]
     Route: 048
     Dates: start: 20040601
  3. SPORANOX [Suspect]
     Indication: BRONCHOPULMONARY ASPERGILLOSIS
     Route: 048
     Dates: start: 20040601
  4. CYTOSINE ARABINOSIDE [Suspect]
     Indication: ACUTE MYELOID LEUKAEMIA
     Dates: start: 20021214, end: 20040227
  5. MITOXANTRONE [Suspect]
     Indication: ACUTE MYELOID LEUKAEMIA
     Dates: start: 20030325
  6. ETOPOSIDE [Suspect]
     Indication: ACUTE MYELOID LEUKAEMIA
     Dates: start: 20021214, end: 20030115
  7. IDARUBICINE [Concomitant]
     Indication: ACUTE MYELOID LEUKAEMIA
     Dates: start: 20021214, end: 20030115

REACTIONS (6)
  - BRONCHOPULMONARY ASPERGILLOSIS [None]
  - DIPLEGIA [None]
  - DIPLOPIA [None]
  - POLYNEUROPATHY [None]
  - STEM CELL TRANSPLANT [None]
  - VOMITING [None]
